FAERS Safety Report 15886522 (Version 1)
Quarter: 2019Q1

REPORT INFORMATION
  Report Type: Spontaneous
  Country: DE (occurrence: DE)
  Receive Date: 20190129
  Receipt Date: 20190129
  Transmission Date: 20190417
  Serious: Yes (Other)
  Sender: FDA-Public Use
  Company Number: PHHY2019DE016540

PATIENT
  Age: 47 Year
  Sex: Female
  Weight: 43 kg

DRUGS (1)
  1. COSENTYX [Suspect]
     Active Substance: SECUKINUMAB
     Indication: PSORIASIS
     Dosage: 300 MG, UNK
     Route: 065
     Dates: start: 201804

REACTIONS (9)
  - Mite allergy [Unknown]
  - Fatigue [Unknown]
  - Herpes virus infection [Unknown]
  - Suicidal ideation [Unknown]
  - Vulvovaginal mycotic infection [Unknown]
  - Cough [Unknown]
  - Sense of oppression [Unknown]
  - Oral candidiasis [Unknown]
  - Cystitis [Unknown]

NARRATIVE: CASE EVENT DATE: 201809
